FAERS Safety Report 8602537-8 (Version None)
Quarter: 2012Q3

REPORT INFORMATION
  Report Type: 
  Country: None (occurrence: None)
  Receive Date: 20120817
  Receipt Date: 20120808
  Transmission Date: 20120928
  Serious: Yes (Other)
  Sender: FDA-Public Use
  Company Number: PHHY2012CA027058

PATIENT
  Sex: Male

DRUGS (2)
  1. GILENYA [Suspect]
     Dosage: 0.5 MG, QD
     Route: 048
     Dates: start: 20120326
  2. GILENYA [Suspect]
     Indication: RELAPSING-REMITTING MULTIPLE SCLEROSIS
     Dosage: 0.5 MG, QD
     Route: 048
     Dates: start: 20120307, end: 20120309

REACTIONS (11)
  - MEDICATION ERROR [None]
  - ERYTHEMA [None]
  - ECZEMA [None]
  - DIZZINESS [None]
  - PRESBYOPIA [None]
  - OPTIC ATROPHY [None]
  - ACNE [None]
  - SWELLING FACE [None]
  - EYE DISORDER [None]
  - COLOUR BLINDNESS [None]
  - DRY SKIN [None]
